FAERS Safety Report 12187920 (Version 9)
Quarter: 2017Q1

REPORT INFORMATION
  Report Type: Report from Study
  Country: US (occurrence: US)
  Receive Date: 20160317
  Receipt Date: 20170322
  Transmission Date: 20170428
  Serious: Yes (Other)
  Sender: FDA-Public Use
  Company Number: US-JNJFOC-20160226530

PATIENT
  Age: 66 Year
  Sex: Male

DRUGS (14)
  1. IMBRUVICA [Suspect]
     Active Substance: IBRUTINIB
     Indication: B-CELL LYMPHOMA
     Route: 048
     Dates: start: 20160128
  2. IMBRUVICA [Suspect]
     Active Substance: IBRUTINIB
     Indication: WALDENSTROM^S MACROGLOBULINAEMIA
     Route: 048
     Dates: start: 20160201
  3. VITAMIN D [Concomitant]
     Active Substance: CHOLECALCIFEROL
     Dosage: 1 TABELET, DAILY
     Route: 048
  4. IMBRUVICA [Suspect]
     Active Substance: IBRUTINIB
     Indication: B-CELL LYMPHOMA
     Route: 048
     Dates: start: 20160201
  5. DOXYCYCLINE. [Concomitant]
     Active Substance: DOXYCYCLINE
     Route: 048
  6. TAMSULOSIN [Concomitant]
     Active Substance: TAMSULOSIN
     Route: 048
     Dates: start: 20150325
  7. OMEPRAZOLE. [Concomitant]
     Active Substance: OMEPRAZOLE
     Route: 048
     Dates: start: 20130722
  8. ACETAZOLAMIDE. [Concomitant]
     Active Substance: ACETAZOLAMIDE
     Indication: HYPOBARISM
  9. IMBRUVICA [Suspect]
     Active Substance: IBRUTINIB
     Indication: WALDENSTROM^S MACROGLOBULINAEMIA
     Route: 048
     Dates: start: 20160128
  10. CHERATUSSIN AC [Concomitant]
     Active Substance: CODEINE PHOSPHATE\GUAIFENESIN
     Dosage: 1 TEASPOON, Q12H, PRN
     Route: 048
     Dates: start: 20160226
  11. VITAMIN C [Concomitant]
     Active Substance: ASCORBIC ACID
     Dosage: 1 TABELET, DAILY
     Route: 048
  12. LEVOFLOXACIN. [Concomitant]
     Active Substance: LEVOFLOXACIN
     Route: 048
     Dates: start: 20160226
  13. SYNTHROID [Concomitant]
     Active Substance: LEVOTHYROXINE SODIUM
     Indication: HYPOTHYROIDISM
     Dosage: 88 MCG, QD
     Route: 048
     Dates: start: 20110824
  14. MULTIVITAMINS [Concomitant]
     Active Substance: VITAMINS
     Dosage: 1 TABLET, DAILY
     Route: 048

REACTIONS (17)
  - Haemoglobin increased [Recovering/Resolving]
  - Flatulence [Not Recovered/Not Resolved]
  - Blood pressure increased [Recovering/Resolving]
  - Loss of consciousness [Unknown]
  - Blood viscosity decreased [Unknown]
  - Frequent bowel movements [Unknown]
  - Lower respiratory tract infection [Not Recovered/Not Resolved]
  - Hypobarism [Unknown]
  - Protein total decreased [Unknown]
  - Nasopharyngitis [Not Recovered/Not Resolved]
  - Contusion [Recovering/Resolving]
  - Nausea [Not Recovered/Not Resolved]
  - Dizziness [Unknown]
  - Fall [Unknown]
  - Weight increased [Not Recovered/Not Resolved]
  - Gastrointestinal motility disorder [Not Recovered/Not Resolved]
  - Headache [Not Recovered/Not Resolved]

NARRATIVE: CASE EVENT DATE: 2016
